FAERS Safety Report 11300020 (Version 1)
Quarter: 2015Q3

REPORT INFORMATION
  Report Type: Spontaneous
  Country: US (occurrence: US)
  Receive Date: 20150722
  Receipt Date: 20150722
  Transmission Date: 20151125
  Serious: No
  Sender: FDA-Public Use
  Company Number: US-ELI_LILLY_AND_COMPANY-US201305003402

PATIENT
  Sex: Male

DRUGS (3)
  1. HUMATROPE [Suspect]
     Active Substance: SOMATROPIN
     Indication: BLOOD GROWTH HORMONE ABNORMAL
     Dosage: 2.8 MG, QD
     Route: 065
     Dates: start: 201302, end: 20130507
  2. VYVANSE [Concomitant]
     Active Substance: LISDEXAMFETAMINE DIMESYLATE
     Dosage: UNK, UNKNOWN
     Route: 065
  3. NASOCORT [Concomitant]
     Active Substance: BUDESONIDE
     Dosage: 1 DF, QD
     Route: 065

REACTIONS (2)
  - Aggression [Unknown]
  - Mood swings [Unknown]
